FAERS Safety Report 17879660 (Version 2)
Quarter: 2020Q4

REPORT INFORMATION
  Report Type: Spontaneous
  Country: US (occurrence: US)
  Receive Date: 20200610
  Receipt Date: 20201006
  Transmission Date: 20210113
  Serious: Yes (Other)
  Sender: FDA-Public Use
  Company Number: US-009507513-2006USA000420

PATIENT
  Age: 23 Year
  Sex: Female
  Weight: 47.17 kg

DRUGS (6)
  1. FENTANYL. [Concomitant]
     Active Substance: FENTANYL
     Dosage: UNK, Q3D, STRENGTH: 25 MICROGRAM PER HOUR (MCG/HR), EVERY 3 DAYS
     Route: 062
  2. NEXPLANON [Suspect]
     Active Substance: ETONOGESTREL
     Indication: CONTRACEPTION
     Dosage: 1 ROD FOR EVERY 3 YEARS, IN LEFT UPPER ARM
     Route: 059
     Dates: start: 20170216, end: 20200527
  3. NEXPLANON [Suspect]
     Active Substance: ETONOGESTREL
     Indication: CONTRACEPTION
     Dosage: 1 IMPLANT FOR 3 YEARS IN LEFT UPPER ARM
     Route: 059
     Dates: start: 20200527
  4. LYRICA [Concomitant]
     Active Substance: PREGABALIN
     Dosage: 50 MILLIGRAM, PRN (AS NEEDED)
     Route: 048
  5. NEXPLANON [Suspect]
     Active Substance: ETONOGESTREL
     Indication: CONTRACEPTION
     Dosage: 1 ROD FOR 3 YEARS, IN LEFT UPPER ARM
     Route: 059
     Dates: start: 20200527, end: 20200527
  6. DULOXETINE HYDROCHLORIDE. [Concomitant]
     Active Substance: DULOXETINE HYDROCHLORIDE
     Dosage: 30 MILLIGRAM, QD (DAILY)
     Route: 048

REACTIONS (5)
  - Complication associated with device [Recovered/Resolved]
  - Product use in unapproved indication [Unknown]
  - Incorrect product administration duration [Unknown]
  - Device dislocation [Recovered/Resolved]
  - Product quality issue [Unknown]

NARRATIVE: CASE EVENT DATE: 20170216
